FAERS Safety Report 21273355 (Version 3)
Quarter: 2022Q4

REPORT INFORMATION
  Report Type: Spontaneous
  Country: GB (occurrence: GB)
  Receive Date: 20220831
  Receipt Date: 20221129
  Transmission Date: 20230113
  Serious: Yes (Other)
  Sender: FDA-Public Use
  Company Number: GB-MYLANLABS-2022M1086867

PATIENT
  Sex: Male

DRUGS (1)
  1. CLOZARIL [Suspect]
     Active Substance: CLOZAPINE
     Indication: Schizophrenia
     Dosage: UNK
     Route: 048
     Dates: start: 20090927

REACTIONS (7)
  - Sepsis [Unknown]
  - Myelofibrosis [Unknown]
  - Asthenia [Unknown]
  - Blood electrolytes abnormal [Unknown]
  - Muscle tone disorder [Unknown]
  - Illness [Recovered/Resolved]
  - Therapy interrupted [Unknown]
